FAERS Safety Report 19183207 (Version 3)
Quarter: 2021Q2

REPORT INFORMATION
  Report Type: Spontaneous
  Country: US (occurrence: US)
  Receive Date: 20210427
  Receipt Date: 20210608
  Transmission Date: 20210717
  Serious: Yes (Other)
  Sender: FDA-Public Use
  Company Number: US-AUROBINDO-AUR-APL-2021-016157

PATIENT
  Sex: Female
  Weight: 81 kg

DRUGS (5)
  1. DULOXETINE DELAYED?RELEASE CAPSULES USP 30 MG [Suspect]
     Active Substance: DULOXETINE
     Indication: DEPRESSION
     Dosage: 1 DOSAGE FORM, DAILY
     Route: 048
     Dates: start: 20210311
  2. TRAZODONE [Concomitant]
     Active Substance: TRAZODONE HYDROCHLORIDE
     Indication: PRODUCT USED FOR UNKNOWN INDICATION
     Dosage: UNK
     Route: 065
  3. FLEXERIL [Concomitant]
     Active Substance: CYCLOBENZAPRINE HYDROCHLORIDE
     Indication: MUSCLE RELAXANT THERAPY
     Dosage: UNK
     Route: 065
  4. DULOXETINE DELAYED?RELEASE CAPSULES USP 30 MG [Suspect]
     Active Substance: DULOXETINE
     Dosage: 20 MILLIGRAM, DAILY
     Route: 048
  5. METHADONE [Concomitant]
     Active Substance: METHADONE HYDROCHLORIDE
     Indication: PAIN
     Dosage: UNK
     Route: 065

REACTIONS (6)
  - Deafness [Recovered/Resolved]
  - Malaise [Recovered/Resolved]
  - Eye swelling [Recovered/Resolved]
  - Electric shock sensation [Recovered/Resolved]
  - Muscle twitching [Recovered/Resolved]
  - Seizure [Recovered/Resolved]
